FAERS Safety Report 21894828 (Version 3)
Quarter: 2023Q1

REPORT INFORMATION
  Report Type: Spontaneous
  Country: US (occurrence: US)
  Receive Date: 20230122
  Receipt Date: 20230223
  Transmission Date: 20230418
  Serious: No
  Sender: FDA-Public Use
  Company Number: US-JNJFOC-20230130258

PATIENT
  Age: 38 Year
  Sex: Female

DRUGS (1)
  1. SPRAVATO [Suspect]
     Active Substance: ESKETAMINE
     Indication: Product used for unknown indication
     Route: 045

REACTIONS (3)
  - Product quality issue [Unknown]
  - Underdose [Unknown]
  - Product administration error [Unknown]

NARRATIVE: CASE EVENT DATE: 20230112
